FAERS Safety Report 22516822 (Version 1)
Quarter: 2023Q2

REPORT INFORMATION
  Report Type: Spontaneous
  Country: FR (occurrence: FR)
  Receive Date: 20230603
  Receipt Date: 20230603
  Transmission Date: 20230721
  Serious: Yes (Hospitalization)
  Sender: FDA-Public Use
  Company Number: FR-STRIDES ARCOLAB LIMITED-2023SP008515

PATIENT
  Age: 38 Year
  Sex: Female

DRUGS (16)
  1. DIAZEPAM [Interacting]
     Active Substance: DIAZEPAM
     Indication: Sedative therapy
     Dosage: 30 MILLIGRAM/DAY
     Route: 065
     Dates: start: 20220422
  2. OLANZAPINE [Suspect]
     Active Substance: OLANZAPINE
     Indication: Antipsychotic therapy
     Dosage: 10 MILLIGRAM/DAY
     Route: 065
  3. OLANZAPINE [Suspect]
     Active Substance: OLANZAPINE
     Dosage: UNK
     Route: 065
  4. MIRTAZAPINE [Suspect]
     Active Substance: MIRTAZAPINE
     Indication: Antipsychotic therapy
     Dosage: 15 MILLIGRAM/DAY, FOR 5 MONTHS
     Route: 065
  5. MIRTAZAPINE [Suspect]
     Active Substance: MIRTAZAPINE
     Dosage: 7.5 MILLIGRAM/DAY
     Route: 065
     Dates: start: 20220610
  6. QUETIAPINE [Suspect]
     Active Substance: QUETIAPINE
     Indication: Antipsychotic therapy
     Dosage: 400 MILLIGRAM/DAY
     Route: 065
  7. QUETIAPINE [Suspect]
     Active Substance: QUETIAPINE
     Dosage: 400 MILLIGRAM/DAY
     Route: 065
     Dates: start: 20220422, end: 20220605
  8. AMISULPRIDE [Suspect]
     Active Substance: AMISULPRIDE
     Indication: Antipsychotic therapy
     Dosage: 50 MILLIGRAM/DAY
     Route: 065
  9. AMISULPRIDE [Suspect]
     Active Substance: AMISULPRIDE
     Dosage: 50 MILLIGRAM/DAY
     Route: 065
     Dates: start: 20220422
  10. PAROXETINE [Suspect]
     Active Substance: PAROXETINE
     Indication: Depressive symptom
     Dosage: 20 MILLIGRAM/DAY
     Route: 065
     Dates: start: 20220423, end: 20220425
  11. PAROXETINE [Suspect]
     Active Substance: PAROXETINE
     Dosage: 40 MILLIGRAM/DAY
     Route: 065
     Dates: start: 20220426, end: 20220626
  12. CYAMEMAZINE [Suspect]
     Active Substance: CYAMEMAZINE
     Indication: Antipsychotic therapy
     Dosage: 150 MILLIGRAM/DAY
     Route: 065
     Dates: start: 20220422
  13. ARIPIPRAZOLE [Interacting]
     Active Substance: ARIPIPRAZOLE
     Indication: Antipsychotic therapy
     Dosage: 5 MILLIGRAM/DAY
     Route: 065
     Dates: start: 20220610
  14. LAMOTRIGINE [Suspect]
     Active Substance: LAMOTRIGINE
     Indication: Antipsychotic therapy
     Dosage: 25 MILLIGRAM/DAY, IMMEDIATE RELEASE
     Route: 065
     Dates: start: 20220608
  15. ZOPICLONE [Interacting]
     Active Substance: ZOPICLONE
     Indication: Sedative therapy
     Dosage: 7.5 MILLIGRAM/DAY
     Route: 065
     Dates: start: 20220422
  16. ETONOGESTREL [Concomitant]
     Active Substance: ETONOGESTREL
     Indication: Contraception
     Dosage: UNK
     Route: 015

REACTIONS (3)
  - Drug interaction [Unknown]
  - Weight increased [Unknown]
  - Confusional state [Unknown]
